FAERS Safety Report 7821493-3 (Version None)
Quarter: 2011Q4

REPORT INFORMATION
  Report Type: 
  Country: None (occurrence: None)
  Receive Date: 20111018
  Receipt Date: 20111010
  Transmission Date: 20120403
  Serious: Yes (Other)
  Sender: FDA-Public Use
  Company Number: PHHY2011FR89617

PATIENT
  Age: 11 Year
  Sex: Female

DRUGS (2)
  1. PIPERACILLIN AND TAZOBACTAM [Suspect]
     Indication: FEBRILE NEUTROPENIA
  2. VINCRISTINE [Interacting]
     Indication: T-CELL TYPE ACUTE LEUKAEMIA

REACTIONS (5)
  - CHOLESTASIS [None]
  - ABDOMINAL PAIN [None]
  - DRUG INTERACTION [None]
  - INTESTINAL OBSTRUCTION [None]
  - AUTONOMIC NEUROPATHY [None]
